FAERS Safety Report 6015758-8 (Version None)
Quarter: 2008Q4

REPORT INFORMATION
  Report Type: 
  Country: None (occurrence: None)
  Receive Date: 20081222
  Receipt Date: 20080714
  Transmission Date: 20090506
  Serious: No
  Sender: FDA-Public Use
  Company Number: US-BAYER-200813087BCC

PATIENT
  Age: 72 Year
  Sex: Female
  Weight: 86 kg

DRUGS (5)
  1. ALEVE [Suspect]
     Indication: SCIATICA
     Dosage: TOTAL DAILY DOSE: 220 MG  UNIT DOSE: 220 MG
     Route: 048
  2. VASOTEC [Concomitant]
  3. ACTOS [Concomitant]
  4. METFORMIN HCL [Concomitant]
  5. EMPHARIL [Concomitant]

REACTIONS (1)
  - SWEAT GLAND DISORDER [None]
